FAERS Safety Report 6209537-6 (Version None)
Quarter: 2009Q2

REPORT INFORMATION
  Report Type: 
  Country: None (occurrence: None)
  Receive Date: 20090527
  Receipt Date: 20090522
  Transmission Date: 20091009
  Serious: Yes (Hospitalization)
  Sender: FDA-Public Use
  Company Number: 2009S1008554

PATIENT
  Age: 64 Year
  Sex: Female

DRUGS (6)
  1. METFORMIN HCL [Suspect]
     Indication: TYPE 2 DIABETES MELLITUS
     Dosage: 1 GM; TABLET; ORAL TWICE A DAY
     Route: 048
     Dates: end: 20090421
  2. FLUVASTATIN [Suspect]
     Indication: HYPERCHOLESTEROLAEMIA
     Dosage: 80 MG;TABLET;ORAL;DAILY
     Route: 048
     Dates: start: 20090303, end: 20090421
  3. BYETTA [Suspect]
     Indication: TYPE 2 DIABETES MELLITUS
     Dosage: 5 UG;INJECTION;SUBCUTANEOUS; TWICE A DAY
     Route: 058
     Dates: start: 20090303, end: 20090420
  4. BISOPROLOL FUMARATE [Concomitant]
  5. HYDROCHLOROTHIAZIDE [Concomitant]
  6. LERCANIDIPINE [Concomitant]

REACTIONS (3)
  - GAMMA-GLUTAMYLTRANSFERASE ABNORMAL [None]
  - TRANSAMINASES INCREASED [None]
  - VOMITING [None]
